FAERS Safety Report 7767686-5 (Version None)
Quarter: 2011Q3

REPORT INFORMATION
  Report Type: 
  Country: None (occurrence: None)
  Receive Date: 20110922
  Receipt Date: 20110915
  Transmission Date: 20111222
  Serious: Yes (Hospitalization)
  Sender: FDA-Public Use
  Company Number: ES-PFIZER INC-2011224294

PATIENT
  Age: 74 Year
  Sex: Male

DRUGS (1)
  1. AMIODARONE HCL [Suspect]
     Indication: ATRIAL FIBRILLATION
     Dosage: 200 MG TABLET (UNKNOWN DOSE AND FREQUENCY)
     Route: 048
     Dates: start: 20090301, end: 20110726

REACTIONS (1)
  - THYROIDITIS [None]
